FAERS Safety Report 15839690 (Version 5)
Quarter: 2019Q4

REPORT INFORMATION
  Report Type: Spontaneous
  Country: PR (occurrence: PR)
  Receive Date: 20190117
  Receipt Date: 20191120
  Transmission Date: 20200122
  Serious: Yes (Other)
  Sender: FDA-Public Use
  Company Number: PR-PFIZER INC-2019022329

PATIENT
  Age: 82 Year
  Sex: Female
  Weight: 52 kg

DRUGS (5)
  1. IBRANCE [Suspect]
     Active Substance: PALBOCICLIB
     Indication: BREAST CANCER FEMALE
     Dosage: 100 MG, CYCLIC (1 CAP DAILY FOR 21 DAYS ON, 7 OFF)
     Route: 048
     Dates: start: 20181004
  2. IBRANCE [Suspect]
     Active Substance: PALBOCICLIB
     Dosage: 100 MG, CYCLIC (1 CAP DAILY FOR 21 DAYS ON, 7 OFF)
     Route: 048
     Dates: start: 20181004
  3. IBRANCE [Suspect]
     Active Substance: PALBOCICLIB
     Dosage: 100 MG, CYCLIC (1 CAP DAILY FOR 21 DAYS ON, 7 OFF)
     Route: 048
     Dates: start: 20181212
  4. IBRANCE [Suspect]
     Active Substance: PALBOCICLIB
     Dosage: 100 MG, CYCLIC(1 CAP DAILY FOR 21 DAYS/ 7 DAYS OFF)
     Route: 048
     Dates: start: 20190312
  5. IBRANCE [Suspect]
     Active Substance: PALBOCICLIB
     Dosage: 100 MG, CYCLIC (1 CAP DAILY FOR 21 DAYS ON, 7 OFF)
     Route: 048
     Dates: start: 20181212

REACTIONS (13)
  - Haemoglobin decreased [Not Recovered/Not Resolved]
  - Fatigue [Not Recovered/Not Resolved]
  - White blood cell count decreased [Unknown]
  - Depression [Unknown]
  - Blood pressure fluctuation [Unknown]
  - Dizziness [Unknown]
  - Taste disorder [Unknown]
  - Alopecia [Unknown]
  - Decreased appetite [Unknown]
  - Stomatitis [Unknown]
  - Hypotension [Unknown]
  - Asthenia [Not Recovered/Not Resolved]
  - Weight decreased [Unknown]

NARRATIVE: CASE EVENT DATE: 20190205
